FAERS Safety Report 10916863 (Version 1)
Quarter: 2015Q1

REPORT INFORMATION
  Report Type: Spontaneous
  Country: US (occurrence: None)
  Receive Date: 20150312
  Receipt Date: 20150312
  Transmission Date: 20150721
  Serious: No
  Sender: FDA-Public Use
  Company Number: None

PATIENT
  Age: 37 Year
  Sex: Female
  Weight: 113.4 kg

DRUGS (11)
  1. CONTRAVE [Suspect]
     Active Substance: BUPROPION HYDROCHLORIDE\NALTREXONE HYDROCHLORIDE
     Indication: WEIGHT DECREASED
     Dosage: TAKEN BY MOUTH
     Route: 048
  2. GABAPENTIN. [Concomitant]
     Active Substance: GABAPENTIN
  3. ZOCOR [Concomitant]
     Active Substance: SIMVASTATIN
  4. IBUPROFEN. [Concomitant]
     Active Substance: IBUPROFEN
  5. VIT. C [Concomitant]
  6. FENOFIBRATE. [Concomitant]
     Active Substance: FENOFIBRATE
  7. NUVARING [Concomitant]
     Active Substance: ETHINYL ESTRADIOL\ETONOGESTREL
  8. SINGULAIR [Concomitant]
     Active Substance: MONTELUKAST SODIUM
  9. LEXAPRO [Concomitant]
     Active Substance: ESCITALOPRAM OXALATE
  10. NEXIUM [Concomitant]
     Active Substance: ESOMEPRAZOLE MAGNESIUM
  11. ZYRTEC [Concomitant]
     Active Substance: CETIRIZINE HYDROCHLORIDE

REACTIONS (6)
  - Feeling jittery [None]
  - Impaired driving ability [None]
  - Tremor [None]
  - Decreased activity [None]
  - Dizziness [None]
  - Constipation [None]

NARRATIVE: CASE EVENT DATE: 20150125
